FAERS Safety Report 19423061 (Version 1)
Quarter: 2021Q2

REPORT INFORMATION
  Report Type: Spontaneous
  Country: US (occurrence: US)
  Receive Date: 20210616
  Receipt Date: 20210616
  Transmission Date: 20210717
  Serious: Yes (Other)
  Sender: FDA-Public Use
  Company Number: US-PFIZER INC-2014102254

PATIENT
  Age: 4 Day
  Sex: Male

DRUGS (5)
  1. MORPHINE [Concomitant]
     Active Substance: MORPHINE
     Indication: ANALGESIC THERAPY
     Dosage: UNK
  2. AMPICILLIN SODIUM. [Suspect]
     Active Substance: AMPICILLIN SODIUM
     Indication: NEONATAL PNEUMONIA
     Dosage: UNK
  3. GENTAMICIN SULFATE. [Suspect]
     Active Substance: GENTAMICIN SULFATE
     Indication: SEPSIS NEONATAL
  4. AMPICILLIN SODIUM. [Suspect]
     Active Substance: AMPICILLIN SODIUM
     Indication: SEPSIS NEONATAL
  5. GENTAMICIN SULFATE. [Suspect]
     Active Substance: GENTAMICIN SULFATE
     Indication: NEONATAL PNEUMONIA
     Dosage: UNK

REACTIONS (4)
  - Thrombocytopenia neonatal [Recovered/Resolved]
  - Haemorrhage neonatal [Recovered/Resolved]
  - Drug hypersensitivity [Recovered/Resolved]
  - Drug eruption [Recovered/Resolved]
